FAERS Safety Report 20136574 (Version 1)
Quarter: 2021Q4

REPORT INFORMATION
  Report Type: Spontaneous
  Country: US (occurrence: US)
  Receive Date: 20211201
  Receipt Date: 20211201
  Transmission Date: 20220303
  Serious: No
  Sender: FDA-Public Use
  Company Number: US-MYLANLABS-2021M1087314

PATIENT
  Age: 74 Year
  Sex: Female
  Weight: 79 kg

DRUGS (1)
  1. ISOSULFAN BLUE [Suspect]
     Active Substance: ISOSULFAN BLUE
     Indication: Product used for unknown indication
     Dosage: 1 PERCENT
     Route: 042
     Dates: start: 20211122, end: 20211122

REACTIONS (1)
  - Incorrect route of product administration [Unknown]

NARRATIVE: CASE EVENT DATE: 20211122
